FAERS Safety Report 7878429 (Version 2)
Quarter: 2017Q1

REPORT INFORMATION
  Report Type: Report from Study
  Country: FR (occurrence: FR)
  Receive Date: 20110330
  Receipt Date: 20170313
  Transmission Date: 20170429
  Serious: Yes (Life-Threatening, Hospitalization)
  Sender: FDA-Public Use
  Company Number: FR-AMGEN LTD.-KDC436208

PATIENT
  Age: 63 Year
  Sex: Female

DRUGS (5)
  1. EPIRUBICIN HYDROCHLORIDE. [Suspect]
     Active Substance: EPIRUBICIN HYDROCHLORIDE
     Indication: BREAST CANCER
     Dosage: 172 MG, UNK
     Route: 042
     Dates: start: 20100628
  2. PANITUMUMAB [Suspect]
     Active Substance: PANITUMUMAB
     Indication: BREAST CANCER
     Dosage: 567 MG, UNK
     Route: 042
     Dates: start: 20100628
  3. CYCLOPHOSPHAMIDE. [Suspect]
     Active Substance: CYCLOPHOSPHAMIDE
     Indication: BREAST CANCER
     Dosage: 860 MG, UNK
     Route: 042
     Dates: start: 20100628
  4. FLUOROURACIL. [Suspect]
     Active Substance: FLUOROURACIL
     Indication: BREAST CANCER
     Dosage: 860 MG, UNK
     Route: 042
     Dates: start: 20100628
  5. DOXYCYCLINE. [Concomitant]
     Active Substance: DOXYCYCLINE
     Dosage: 100 MG, UNK
     Dates: start: 20100628, end: 20100723

REACTIONS (3)
  - Stomatitis [Recovered/Resolved]
  - Hepatocellular injury [Recovered/Resolved]
  - Sepsis [Recovered/Resolved]

NARRATIVE: CASE EVENT DATE: 20100712
